FAERS Safety Report 7240561-0 (Version None)
Quarter: 2011Q1

REPORT INFORMATION
  Report Type: 
  Country: None (occurrence: None)
  Receive Date: 20110120
  Receipt Date: 20110120
  Transmission Date: 20110831
  Serious: Yes (Other)
  Sender: FDA-Public Use
  Company Number: None

PATIENT
  Age: 61 Year
  Sex: Female
  Weight: 49.8957 kg

DRUGS (2)
  1. PHENAGREN [Suspect]
     Indication: ABDOMINAL DISCOMFORT
     Dosage: 25 MG 1 INTRO.
  2. PHENAGREN [Suspect]
     Indication: ABDOMINAL DISCOMFORT
     Dosage: 25 MG 1 TABLET

REACTIONS (8)
  - RESPIRATORY RATE INCREASED [None]
  - TREMOR [None]
  - HEART RATE INCREASED [None]
  - HYPOAESTHESIA [None]
  - AGITATION [None]
  - DYSKINESIA [None]
  - CONFUSIONAL STATE [None]
  - GAIT DISTURBANCE [None]
